FAERS Safety Report 14884955 (Version 1)
Quarter: 2018Q2

REPORT INFORMATION
  Report Type: Spontaneous
  Country: US (occurrence: US)
  Receive Date: 20180511
  Receipt Date: 20180511
  Transmission Date: 20180711
  Serious: Yes (Hospitalization, Other)
  Sender: FDA-Public Use
  Company Number: US-TELIGENT, INC-IGIL20180263

PATIENT
  Age: 49 Year
  Sex: Female

DRUGS (1)
  1. CIPROFLOXACIN HYDROCHLORIDE. [Suspect]
     Active Substance: CIPROFLOXACIN HYDROCHLORIDE
     Indication: CONJUNCTIVITIS
     Dosage: UNKNOWN
     Route: 047

REACTIONS (14)
  - Erythema multiforme [Recovered/Resolved]
  - Papule [Recovered/Resolved]
  - Odynophagia [Recovering/Resolving]
  - Pruritus [Recovering/Resolving]
  - Oral mucosa erosion [Recovered/Resolved]
  - Pharyngeal erosion [Recovered/Resolved]
  - Condition aggravated [Recovering/Resolving]
  - Rash generalised [Recovered/Resolved]
  - Eye pain [Recovering/Resolving]
  - Mucosal inflammation [Recovering/Resolving]
  - Epidermal necrosis [Recovered/Resolved]
  - Erythema annulare [Recovered/Resolved]
  - Skin plaque [Recovered/Resolved]
  - Dermatitis [Recovered/Resolved]
